FAERS Safety Report 14037058 (Version 3)
Quarter: 2019Q4

REPORT INFORMATION
  Report Type: Report from Study
  Country: FR (occurrence: FR)
  Receive Date: 20171004
  Receipt Date: 20191211
  Transmission Date: 20200122
  Serious: Yes (Other)
  Sender: FDA-Public Use
  Company Number: FR-ROCHE-1997499

PATIENT
  Age: 54 Year
  Sex: Female

DRUGS (10)
  1. BEVACIZUMAB. [Suspect]
     Active Substance: BEVACIZUMAB
     Indication: OVARIAN CANCER
     Route: 042
     Dates: start: 20170217, end: 20170802
  2. PEGYLATED LIPOSOMAL DOXORUBICIN [Suspect]
     Active Substance: DOXORUBICIN
     Indication: OVARIAN CANCER
     Route: 042
     Dates: start: 20170202, end: 20170720
  3. ZOPHREN [ONDANSETRON] [Concomitant]
     Active Substance: ONDANSETRON
  4. CARBOPLATIN. [Suspect]
     Active Substance: CARBOPLATIN
     Indication: OVARIAN CANCER
     Route: 042
     Dates: start: 20170217, end: 20170720
  5. PEGYLATED LIPOSOMAL DOXORUBICIN [Suspect]
     Active Substance: DOXORUBICIN
     Indication: OVARIAN CANCER
     Dosage: LAST DOSE RECEIVED ON 20/JUL/2017 PRIOR TO ADVERSE EVENTS AND PERMANENTLY STOPPED (AS PER PROTOCOL)
     Route: 042
     Dates: start: 20170217
  6. CARBOPLATIN. [Suspect]
     Active Substance: CARBOPLATIN
     Indication: OVARIAN CANCER
     Dosage: TO ACHIEVE AREA UNDER THE CURVE (AUC) 5 DAY 1?LAST DOSE RECEIVED ON 20/JUL/2017 PRIOR TO ADVERSE EVE
     Route: 042
     Dates: start: 20170217
  7. BLINDED ATEZOLIZUMAB [Suspect]
     Active Substance: ATEZOLIZUMAB
     Indication: OVARIAN CANCER
     Dosage: LAST DOSE RECEIVED ON 13/SEP/2017 AND TEMPORARILY STOPPED?LAST DOSE OF BLINDED ATEZOLIZUMAB PRIOR TO
     Route: 042
     Dates: start: 20170217, end: 20170913
  8. BLINDED ATEZOLIZUMAB [Suspect]
     Active Substance: ATEZOLIZUMAB
     Indication: OVARIAN CANCER
     Route: 042
     Dates: start: 20170217, end: 20170802
  9. BEVACIZUMAB. [Suspect]
     Active Substance: BEVACIZUMAB
     Indication: OVARIAN CANCER
     Dosage: LAST DOSE RECEIVED ON 13/SEP/2017 AND TEMPORARILY STOPPED?LAST DOSE OF BEVACIZUMAB PRIOR TO ADVERSE
     Route: 042
     Dates: start: 20170217
  10. OMEPRAZOLE. [Concomitant]
     Active Substance: OMEPRAZOLE

REACTIONS (2)
  - Hypertension [Recovered/Resolved]
  - Ventricular failure [Not Recovered/Not Resolved]

NARRATIVE: CASE EVENT DATE: 20170822
